FAERS Safety Report 13361374 (Version 2)
Quarter: 2017Q2

REPORT INFORMATION
  Report Type: Spontaneous
  Country: FR (occurrence: FR)
  Receive Date: 20170323
  Receipt Date: 20170620
  Transmission Date: 20170830
  Serious: Yes (Life-Threatening)
  Sender: FDA-Public Use
  Company Number: FR-ROCHE-1907651

PATIENT
  Age: 74 Year
  Sex: Male

DRUGS (12)
  1. ELDISINE [Concomitant]
     Active Substance: VINDESINE SULFATE
     Indication: LYMPHOMA
     Dosage: 77 DAYS
     Route: 041
     Dates: start: 20110107, end: 20110324
  2. ETOPOSIDE. [Concomitant]
     Active Substance: ETOPOSIDE
     Route: 065
     Dates: start: 201101, end: 20120324
  3. PREDNISONE. [Concomitant]
     Active Substance: PREDNISONE
     Route: 065
     Dates: start: 201101, end: 20120324
  4. MABTHERA [Suspect]
     Active Substance: RITUXIMAB
     Indication: B-CELL LYMPHOMA
     Dosage: 5 YEARS
     Route: 041
     Dates: start: 20100804, end: 20160218
  5. MABTHERA [Suspect]
     Active Substance: RITUXIMAB
     Route: 042
     Dates: start: 200811, end: 200902
  6. CYCLOPHOSPHAMIDE. [Concomitant]
     Active Substance: CYCLOPHOSPHAMIDE
     Indication: LYMPHOMA
     Dosage: 77 DAYS
     Route: 041
     Dates: start: 20110107, end: 20110324
  7. VINCRISTINE TEVA [Suspect]
     Active Substance: VINCRISTINE
     Indication: B-CELL LYMPHOMA
     Dosage: 48 DAYS
     Route: 041
     Dates: start: 20161012, end: 20161128
  8. GAZYVARO [Suspect]
     Active Substance: OBINUTUZUMAB
     Indication: B-CELL LYMPHOMA
     Dosage: 47 DAYS
     Route: 041
     Dates: start: 20161013, end: 20161128
  9. LEVACT (FRANCE) [Suspect]
     Active Substance: BENDAMUSTINE HYDROCHLORIDE
     Indication: B-CELL LYMPHOMA
     Dosage: 793 DAYS
     Route: 041
     Dates: start: 20131219, end: 20160219
  10. PREDNISONE. [Concomitant]
     Active Substance: PREDNISONE
     Route: 065
     Dates: start: 200811, end: 200902
  11. MABTHERA [Suspect]
     Active Substance: RITUXIMAB
     Route: 042
     Dates: start: 201101, end: 20120324
  12. DOXORUBICINE TEVA [Suspect]
     Active Substance: DOXORUBICIN
     Indication: B-CELL LYMPHOMA
     Dosage: 22 DAYS
     Route: 041
     Dates: start: 20161107, end: 20161128

REACTIONS (1)
  - Progressive multifocal leukoencephalopathy [Not Recovered/Not Resolved]

NARRATIVE: CASE EVENT DATE: 201702
